FAERS Safety Report 16559481 (Version 3)
Quarter: 2019Q3

REPORT INFORMATION
  Report Type: Spontaneous
  Country: PT (occurrence: PT)
  Receive Date: 20190711
  Receipt Date: 20190729
  Transmission Date: 20191004
  Serious: Yes (Hospitalization, Other)
  Sender: FDA-Public Use
  Company Number: PT-ELI_LILLY_AND_COMPANY-PT201907003268

PATIENT
  Age: 50 Year
  Sex: Male

DRUGS (1)
  1. OLANZAPINE. [Suspect]
     Active Substance: OLANZAPINE
     Indication: SCHIZOPHRENIA
     Dosage: 10 MG, UNKNOWN
     Route: 065

REACTIONS (6)
  - Thymoma [Recovering/Resolving]
  - Asthenia [Recovered/Resolved]
  - Diplopia [Recovered/Resolved]
  - Calcification metastatic [Unknown]
  - Ocular myasthenia [Recovering/Resolving]
  - Fatigue [Recovered/Resolved]
